FAERS Safety Report 8573059 (Version 3)
Quarter: 2012Q4

REPORT INFORMATION
  Report Type: 
  Country: FR (occurrence: FR)
  Receive Date: 20120522
  Receipt Date: 20121105
  Transmission Date: 20130627
  Serious: Yes (Hospitalization)
  Sender: FDA-Public Use
  Company Number: FR-ASTRAZENECA-2012SE30957

PATIENT
  Age: 16 Month
  Sex: Male

DRUGS (1)
  1. INEXIUM [Suspect]
     Indication: GASTROOESOPHAGEAL REFLUX DISEASE
     Route: 048
     Dates: start: 2011

REACTIONS (2)
  - Bronchiolitis [Recovered/Resolved]
  - Off label use [Recovered/Resolved]
